FAERS Safety Report 6557508-2 (Version None)
Quarter: 2010Q1

REPORT INFORMATION
  Report Type: 
  Country: None (occurrence: None)
  Receive Date: 20100129
  Receipt Date: 20100119
  Transmission Date: 20100710
  Serious: No
  Sender: FDA-Public Use
  Company Number: US-JNJFOC-20091205059

PATIENT
  Sex: Male
  Weight: 74.39 kg

DRUGS (9)
  1. REMICADE [Suspect]
     Indication: CROHN'S DISEASE
     Route: 042
  2. REMICADE [Suspect]
     Route: 042
  3. REMICADE [Suspect]
     Route: 042
  4. REMICADE [Suspect]
     Route: 042
  5. REMICADE [Suspect]
     Route: 042
  6. ENTOCORT EC [Concomitant]
     Indication: CROHN'S DISEASE
  7. PENTASA [Concomitant]
     Indication: CROHN'S DISEASE
  8. IMURAN [Concomitant]
  9. SOLU-MEDROL [Concomitant]
     Indication: PREMEDICATION
     Route: 042

REACTIONS (2)
  - CHILLS [None]
  - INFUSION RELATED REACTION [None]
